FAERS Safety Report 9407173 (Version 1)
Quarter: 2013Q3

REPORT INFORMATION
  Report Type: Spontaneous
  Country: GB (occurrence: GB)
  Receive Date: 20130718
  Receipt Date: 20130718
  Transmission Date: 20140515
  Serious: Yes (Other)
  Sender: FDA-Public Use
  Company Number: PHHY2013GB073673

PATIENT
  Age: 68 Year
  Sex: Female

DRUGS (2)
  1. TIMOLOL [Suspect]
     Dosage: UNK UKN, BID
     Route: 047
  2. CHLORAMPHENICOL [Interacting]
     Dosage: UNK UKN, QD
     Route: 047

REACTIONS (8)
  - Corneal epithelium defect [Unknown]
  - Visual acuity reduced [Unknown]
  - Conjunctival hyperaemia [Unknown]
  - Neovascularisation [Unknown]
  - Corneal oedema [Unknown]
  - Corneal pigmentation [Unknown]
  - Corneal deposits [Unknown]
  - Drug interaction [Unknown]
